FAERS Safety Report 20515466 (Version 1)
Quarter: 2022Q1

REPORT INFORMATION
  Report Type: Spontaneous
  Country: US (occurrence: US)
  Receive Date: 20220224
  Receipt Date: 20220224
  Transmission Date: 20220423
  Serious: No
  Sender: FDA-Public Use
  Company Number: US-LANTHEUS-LMI-2021-00088

PATIENT
  Age: 52 Year
  Sex: Female
  Weight: 72 kg

DRUGS (2)
  1. DEFINITY [Suspect]
     Active Substance: PERFLUTREN
     Indication: Echocardiogram
     Dosage: 1 MILLILITER (1.3 ML DEFINITY PREPARED IN 8.7 ML NS)
     Route: 042
     Dates: start: 20210209, end: 20210209
  2. ALBUTEROL SULFATE [Concomitant]
     Active Substance: ALBUTEROL SULFATE
     Indication: Product used for unknown indication
     Dosage: UNK, PRN

REACTIONS (2)
  - Cyanosis [Recovered/Resolved]
  - Dyspnoea [Recovered/Resolved]

NARRATIVE: CASE EVENT DATE: 20210209
